FAERS Safety Report 16017279 (Version 1)
Quarter: 2019Q1

REPORT INFORMATION
  Report Type: Report from Study
  Country: FR (occurrence: FR)
  Receive Date: 20190228
  Receipt Date: 20190228
  Transmission Date: 20190418
  Serious: Yes (Other)
  Sender: FDA-Public Use
  Company Number: FR-HBP-2019FR018415

PATIENT
  Sex: Female

DRUGS (2)
  1. VALCHLOR [Suspect]
     Active Substance: MECHLORETHAMINE
     Indication: MYCOSIS FUNGOIDES
     Dosage: UNK, 3/WEEK
     Dates: start: 20180205, end: 20181231
  2. DERMOVAL                           /00008501/ [Concomitant]
     Active Substance: CLOBETASOL PROPIONATE

REACTIONS (4)
  - Treatment failure [Unknown]
  - Mycosis fungoides [Unknown]
  - Malignant neoplasm progression [Unknown]
  - Application site nodule [Unknown]

NARRATIVE: CASE EVENT DATE: 20180903
